FAERS Safety Report 23134060 (Version 1)
Quarter: 2023Q4

REPORT INFORMATION
  Report Type: Spontaneous
  Country: JP (occurrence: JP)
  Receive Date: 20231101
  Receipt Date: 20231101
  Transmission Date: 20240109
  Serious: Yes (Hospitalization, Other)
  Sender: FDA-Public Use
  Company Number: JP-PFIZER INC-PV202300126408

PATIENT
  Age: 70 Year
  Sex: Male

DRUGS (8)
  1. BESPONSA [Suspect]
     Active Substance: INOTUZUMAB OZOGAMICIN
     Indication: Acute lymphocytic leukaemia recurrent
     Dosage: 0.8 MG/M2, 1X/DAY
     Route: 041
     Dates: start: 20230627, end: 20230627
  2. MEDROL [Suspect]
     Active Substance: METHYLPREDNISOLONE
     Dosage: UNK
  3. PROGRAF [Suspect]
     Active Substance: TACROLIMUS
     Indication: Prophylaxis against graft versus host disease
     Dosage: UNK
     Dates: start: 20220708
  4. PROGRAF [Suspect]
     Active Substance: TACROLIMUS
     Dosage: UNK
     Dates: start: 20220710
  5. PROGRAF [Suspect]
     Active Substance: TACROLIMUS
     Dosage: UNK
     Dates: start: 20220713
  6. METHOTREXATE [Concomitant]
     Active Substance: METHOTREXATE
     Indication: Prophylaxis against graft versus host disease
     Dosage: 15 MG
     Route: 042
     Dates: start: 20220708
  7. METHOTREXATE [Concomitant]
     Active Substance: METHOTREXATE
     Dosage: 10 MG
     Route: 042
     Dates: start: 20220710
  8. METHOTREXATE [Concomitant]
     Active Substance: METHOTREXATE
     Dosage: 15 MG
     Route: 042
     Dates: start: 20220713

REACTIONS (2)
  - Chronic graft versus host disease in skin [Recovering/Resolving]
  - Alanine aminotransferase increased [Not Recovered/Not Resolved]

NARRATIVE: CASE EVENT DATE: 20230704
